FAERS Safety Report 19591044 (Version 1)
Quarter: 2021Q3

REPORT INFORMATION
  Report Type: Other
  Country: US (occurrence: US)
  Receive Date: 20210721
  Receipt Date: 20210721
  Transmission Date: 20211014
  Serious: No
  Sender: FDA-Public Use
  Company Number: US-ROCHE-2628627

PATIENT
  Age: 63 Year
  Sex: Female
  Weight: 63.56 kg

DRUGS (10)
  1. OCREVUS [Suspect]
     Active Substance: OCRELIZUMAB
     Indication: PRIMARY PROGRESSIVE MULTIPLE SCLEROSIS
     Dosage: ONGOING YES
     Route: 042
     Dates: start: 20170522
  2. BIOTIN [Concomitant]
     Active Substance: BIOTIN
     Dosage: ONGOING YES
     Route: 048
  3. SYNTHROID [Concomitant]
     Active Substance: LEVOTHYROXINE SODIUM
     Indication: HYPOTHYROIDISM
     Dosage: ONGOING YES
     Route: 048
  4. METOPROLOL SUCCINATE. [Concomitant]
     Active Substance: METOPROLOL SUCCINATE
     Indication: ATRIAL FIBRILLATION
     Dosage: ONGOING YES
     Route: 048
  5. TYLENOL [Concomitant]
     Active Substance: ACETAMINOPHEN
     Indication: PREMEDICATION
     Dosage: TWO 500MG TABS PRIOR TO EACH OCREVUS INFUSION
     Route: 048
  6. ROSUVASTATIN. [Concomitant]
     Active Substance: ROSUVASTATIN
     Indication: BLOOD CHOLESTEROL INCREASED
     Dosage: ONGOING YES
     Route: 048
     Dates: start: 2015
  7. CULTURELLE PROBIOTICS DIGESTIVE HEALTH [Concomitant]
     Indication: GASTROOESOPHAGEAL REFLUX DISEASE
     Route: 048
     Dates: start: 2019
  8. FLAXSEED [Concomitant]
     Active Substance: FLAX SEED
  9. DIGITEK [Concomitant]
     Active Substance: DIGOXIN
     Indication: ATRIAL FIBRILLATION
     Route: 048
  10. CULTURELLE PROBIOTICS DIGESTIVE HEALTH [Concomitant]
     Indication: WEIGHT DECREASED

REACTIONS (13)
  - Headache [Recovered/Resolved]
  - Hiatus hernia [Not Recovered/Not Resolved]
  - Bradykinesia [Not Recovered/Not Resolved]
  - Wheelchair user [Unknown]
  - Weight decreased [Not Recovered/Not Resolved]
  - Memory impairment [Not Recovered/Not Resolved]
  - Autoimmune thyroiditis [Not Recovered/Not Resolved]
  - Pruritus [Recovered/Resolved]
  - Fatigue [Unknown]
  - Herpes zoster [Recovered/Resolved]
  - Nausea [Recovered/Resolved]
  - Decreased appetite [Recovered/Resolved]
  - Skin disorder [Recovered/Resolved]

NARRATIVE: CASE EVENT DATE: 2018
